FAERS Safety Report 14726821 (Version 1)
Quarter: 2018Q2

REPORT INFORMATION
  Report Type: Spontaneous
  Country: US (occurrence: US)
  Receive Date: 20180402
  Receipt Date: 20180402
  Transmission Date: 20180711
  Serious: Yes (Hospitalization)
  Sender: FDA-Public Use
  Company Number: None

PATIENT
  Age: 60 Year
  Sex: Male
  Weight: 132.22 kg

DRUGS (1)
  1. SAXAGLIPTIN [Suspect]
     Active Substance: SAXAGLIPTIN
     Indication: DIABETES MELLITUS
     Route: 048
     Dates: start: 20170607, end: 20170608

REACTIONS (6)
  - Epididymitis [None]
  - Abdominal pain [None]
  - Scrotal swelling [None]
  - Hyperhidrosis [None]
  - Chills [None]
  - Decreased appetite [None]

NARRATIVE: CASE EVENT DATE: 20170608
